FAERS Safety Report 5253580-0 (Version None)
Quarter: 2007Q1

REPORT INFORMATION
  Report Type: 
  Country: None (occurrence: None)
  Receive Date: 20070301
  Receipt Date: 20070223
  Transmission Date: 20070707
  Serious: Yes (Death, Other)
  Sender: FDA-Public Use
  Company Number: US-PFIZER INC-2005079702

PATIENT
  Sex: Male

DRUGS (7)
  1. BEXTRA [Suspect]
     Indication: ARTHRITIS
     Dates: start: 20040712, end: 20050201
  2. ASPIRIN [Concomitant]
     Dosage: DAILY DOSE:81MG
  3. LISINOPRIL [Concomitant]
     Dosage: DAILY DOSE:10MG
  4. LAMISIL [Concomitant]
     Dosage: DAILY DOSE:250MG
  5. GLUCOSAMINE [Concomitant]
  6. CHONDROITIN [Concomitant]
  7. AMANTADINE HCL [Concomitant]

REACTIONS (5)
  - ACUTE CORONARY SYNDROME [None]
  - ACUTE MYOCARDIAL INFARCTION [None]
  - AORTIC VALVE INCOMPETENCE [None]
  - MITRAL VALVE INCOMPETENCE [None]
  - VENTRICULAR HYPERTROPHY [None]
